FAERS Safety Report 8973245 (Version 1)
Quarter: 2012Q4

REPORT INFORMATION
  Report Type: 
  Country: US (occurrence: US)
  Receive Date: 20121219
  Receipt Date: 20121219
  Transmission Date: 20130627
  Serious: Yes (Other)
  Sender: FDA-Public Use
  Company Number: US-RANBAXY-2012US-63255

PATIENT
  Sex: Male

DRUGS (3)
  1. BUDESONIDE [Suspect]
     Indication: GRAFT VERSUS HOST DISEASE
     Dosage: 9 mg
     Route: 048
  2. BUDESONIDE [Interacting]
     Indication: GRAFT VERSUS HOST DISEASE
     Dosage: 3 mg
     Route: 048
  3. FLUCONAZOLE [Interacting]
     Indication: ANTIFUNGAL PROPHYLAXIS
     Dosage: UNK
     Route: 065

REACTIONS (3)
  - Cushing^s syndrome [Unknown]
  - Graft versus host disease [Unknown]
  - Drug interaction [Unknown]
